FAERS Safety Report 12610139 (Version 1)
Quarter: 2016Q3

REPORT INFORMATION
  Report Type: Report from Study
  Country: IT (occurrence: IT)
  Receive Date: 20160801
  Receipt Date: 20160801
  Transmission Date: 20161109
  Serious: Yes (Other)
  Sender: FDA-Public Use
  Company Number: IT-ROCHE-1801296

PATIENT

DRUGS (3)
  1. PLATINUM [Suspect]
     Active Substance: PLATINUM
     Indication: OVARIAN EPITHELIAL CANCER
     Route: 065
  2. BEVACIZUMAB [Suspect]
     Active Substance: BEVACIZUMAB
     Indication: OVARIAN EPITHELIAL CANCER
     Route: 065
  3. PACLITAXEL. [Suspect]
     Active Substance: PACLITAXEL
     Indication: OVARIAN EPITHELIAL CANCER
     Dosage: 3 CYCLES EVERY 21 DAYS
     Route: 065

REACTIONS (5)
  - Ascites [Unknown]
  - Arterial injury [Unknown]
  - Muscle haemorrhage [Unknown]
  - Anaphylactic reaction [Unknown]
  - Haematotoxicity [Unknown]
